FAERS Safety Report 8558086-9 (Version None)
Quarter: 2012Q3

REPORT INFORMATION
  Report Type: 
  Country: None (occurrence: None)
  Receive Date: 20120801
  Receipt Date: 20120718
  Transmission Date: 20120928
  Serious: No
  Sender: FDA-Public Use
  Company Number: US-ASTRAZENECA-2012SE50409

PATIENT
  Sex: Female

DRUGS (1)
  1. CRESTOR [Suspect]
     Route: 048

REACTIONS (6)
  - DYSPHAGIA [None]
  - PHARYNGEAL OEDEMA [None]
  - THROAT IRRITATION [None]
  - COUGH [None]
  - VOMITING [None]
  - AURICULAR SWELLING [None]
